FAERS Safety Report 4822980-2 (Version None)
Quarter: 2005Q4

REPORT INFORMATION
  Report Type: 
  Country: None (occurrence: None)
  Receive Date: 20051108
  Receipt Date: 20051102
  Transmission Date: 20060501
  Serious: Yes (Hospitalization)
  Sender: FDA-Public Use
  Company Number: US-JNJFOC-20050803240

PATIENT
  Sex: Male
  Weight: 82.56 kg

DRUGS (17)
  1. FENTANYL [Suspect]
     Route: 062
  2. DURAGESIC-100 [Suspect]
     Route: 062
  3. PERCOCET [Concomitant]
  4. PERCOCET [Concomitant]
     Dosage: 2.5 MG OXYCODONE HYDROCHLORIDE PLUS 500 MG ACETAMINOPHEN, 4 IN 1 DAY
  5. GABITRIL [Concomitant]
  6. COMBIVENT [Concomitant]
  7. COMBIVENT [Concomitant]
  8. TRUSOPT [Concomitant]
     Dosage: 2%, 3 IN 1 DAY
  9. NITROQUICK [Concomitant]
  10. NITRO-DUR [Concomitant]
  11. IMDUR [Concomitant]
  12. TERAZOSIN [Concomitant]
  13. POTASSIUM CHLORIDE [Concomitant]
  14. FUROSEMIDE [Concomitant]
  15. PROZAC [Concomitant]
  16. SIMVASTATIN [Concomitant]
  17. GABAPENTIN [Concomitant]

REACTIONS (9)
  - CONFUSIONAL STATE [None]
  - DRUG INEFFECTIVE [None]
  - DRY MOUTH [None]
  - DYSPNOEA [None]
  - HYPERHIDROSIS [None]
  - PHARMACEUTICAL PRODUCT COMPLAINT [None]
  - PNEUMONIA [None]
  - SOMNOLENCE [None]
  - THERAPEUTIC RESPONSE UNEXPECTED WITH DRUG SUBSTITUTION [None]
